FAERS Safety Report 7023537-8 (Version None)
Quarter: 2010Q3

REPORT INFORMATION
  Report Type: 
  Country: None (occurrence: None)
  Receive Date: 20100930
  Receipt Date: 20100930
  Transmission Date: 20110219
  Serious: Yes (Life-Threatening, Hospitalization, Disabling, Other)
  Sender: FDA-Public Use
  Company Number: None

PATIENT
  Sex: Male
  Weight: 86.1834 kg

DRUGS (1)
  1. COUMADIN [Suspect]
     Indication: ATRIAL FIBRILLATION
     Dosage: 5 MG DAILY ORAL
     Route: 048
     Dates: start: 20090902, end: 20090909

REACTIONS (2)
  - DRUG HYPERSENSITIVITY [None]
  - DRUG INEFFECTIVE [None]
